FAERS Safety Report 6391019-2 (Version None)
Quarter: 2009Q4

REPORT INFORMATION
  Report Type: 
  Country: None (occurrence: None)
  Receive Date: 20091007
  Receipt Date: 20090928
  Transmission Date: 20100525
  Serious: Yes (Death)
  Sender: FDA-Public Use
  Company Number: US-BIOGENIDEC-2005BI016662

PATIENT
  Age: 57 Year
  Sex: Male

DRUGS (2)
  1. AVONEX [Suspect]
     Indication: MULTIPLE SCLEROSIS
     Route: 030
     Dates: start: 20030825, end: 20060901
  2. AVONEX [Suspect]
     Route: 030
     Dates: start: 20030521, end: 20030818

REACTIONS (2)
  - LUNG NEOPLASM MALIGNANT [None]
  - MOBILITY DECREASED [None]
